FAERS Safety Report 15551870 (Version 1)
Quarter: 2018Q4

REPORT INFORMATION
  Report Type: Spontaneous
  Country: US (occurrence: US)
  Receive Date: 20181025
  Receipt Date: 20181025
  Transmission Date: 20190205
  Serious: No
  Sender: FDA-Public Use
  Company Number: US-JNJFOC-20181007299

PATIENT
  Age: 29 Year
  Sex: Male
  Weight: 115.67 kg

DRUGS (4)
  1. INVEGA SUSTENNA [Suspect]
     Active Substance: PALIPERIDONE PALMITATE
     Indication: PSYCHOMOTOR SKILLS IMPAIRED
     Route: 030
     Dates: start: 2017
  2. INVEGA SUSTENNA [Suspect]
     Active Substance: PALIPERIDONE PALMITATE
     Indication: IMPULSE-CONTROL DISORDER
     Route: 030
     Dates: start: 2017
  3. INVEGA [Suspect]
     Active Substance: PALIPERIDONE
     Indication: IMPULSE-CONTROL DISORDER
     Route: 048
     Dates: start: 2017
  4. INVEGA [Suspect]
     Active Substance: PALIPERIDONE
     Indication: PSYCHOMOTOR SKILLS IMPAIRED
     Route: 048
     Dates: start: 2017

REACTIONS (4)
  - Product administration error [Unknown]
  - Weight decreased [Recovered/Resolved]
  - Product use in unapproved indication [Unknown]
  - Off label use [Unknown]

NARRATIVE: CASE EVENT DATE: 2017
